FAERS Safety Report 16729896 (Version 1)
Quarter: 2019Q3

REPORT INFORMATION
  Report Type: Spontaneous
  Country: GB (occurrence: GB)
  Receive Date: 20190822
  Receipt Date: 20190822
  Transmission Date: 20191005
  Serious: Yes (Hospitalization)
  Sender: FDA-Public Use
  Company Number: GB-ACCORD-152272

PATIENT
  Age: 81 Year
  Sex: Male

DRUGS (14)
  1. ATORVASTATIN/ATORVASTATIN CALCIUM [Suspect]
     Active Substance: ATORVASTATIN CALCIUM
     Indication: PRODUCT USED FOR UNKNOWN INDICATION
  2. SALBUTAMOL [Concomitant]
     Active Substance: ALBUTEROL
     Dosage: ONE OR TWO PUFFS TO BE INHALED UP TO FOUR TIMES A DAY
     Route: 055
  3. CARBOCISTEINE/CARBOCISTEINE LYSINE/CARBOCISTEINE SODIUM [Concomitant]
  4. FOLIC ACID. [Concomitant]
     Active Substance: FOLIC ACID
  5. TAMSULOSIN/TAMSULOSIN HYDROCHLORIDE [Suspect]
     Active Substance: TAMSULOSIN HYDROCHLORIDE
     Indication: PRODUCT USED FOR UNKNOWN INDICATION
  6. IPRATROPIUM [Concomitant]
     Active Substance: IPRATROPIUM
     Dosage: 500MICROGRAMS/2ML. EVERY 4-6 HOURS
  7. SALBUTAMOL [Concomitant]
     Active Substance: ALBUTEROL
  8. BECLOMETASONE DIPROPIONATE/FORMOTEROL FUMARATE DIHYDRATE [Concomitant]
     Dosage: PUFFS. 100MICROGRAMS/DOSE / 6MICROGRAMS
     Route: 055
  9. ATENOLOL/ATENOLOL HYDROCHLORIDE [Concomitant]
  10. TIOTROPIUM [Concomitant]
     Active Substance: TIOTROPIUM
     Route: 055
  11. CLARITHROMYCIN. [Concomitant]
     Active Substance: CLARITHROMYCIN
  12. SPIRIVA [Concomitant]
     Active Substance: TIOTROPIUM BROMIDE MONOHYDRATE
     Dosage: PUFFS
     Route: 055
  13. WARFARIN [Suspect]
     Active Substance: WARFARIN
     Indication: MITRAL VALVE DISEASE
  14. ALLOPURINOL. [Concomitant]
     Active Substance: ALLOPURINOL

REACTIONS (2)
  - Epistaxis [Unknown]
  - Hypotension [Unknown]
